FAERS Safety Report 8499549-4 (Version None)
Quarter: 2012Q3

REPORT INFORMATION
  Report Type: 
  Country: None (occurrence: None)
  Receive Date: 20120710
  Receipt Date: 20120703
  Transmission Date: 20120928
  Serious: Yes (Other)
  Sender: FDA-Public Use
  Company Number: GB-JNJFOC-20120702207

PATIENT

DRUGS (9)
  1. DOXORUBICIN HCL [Suspect]
     Indication: ADULT T-CELL LYMPHOMA/LEUKAEMIA
     Dosage: ON DAY 1 OF 21 DAY, (CYCLE 1-5)
     Route: 042
  2. CYCLOPHOSPHAMIDE [Suspect]
     Indication: ADULT T-CELL LYMPHOMA/LEUKAEMIA
     Dosage: ON DAY 1 OF 21 DAY CYCLE, (CYCLE 1-5)
     Route: 042
  3. COTRIM [Concomitant]
     Indication: ANTIFUNGAL PROPHYLAXIS
     Dosage: 960 MG ORALLY TWICE DAILY THREETIMES A WEEK OR 480 MG DAILY
     Route: 048
  4. ITRACONAZOLE [Concomitant]
     Indication: PROPHYLAXIS
     Route: 065
  5. VINCRISTINE [Suspect]
     Indication: ADULT T-CELL LYMPHOMA/LEUKAEMIA
     Dosage: (MAXIMUM 2 MG) ON DAY 1 OF 21 DAY CYCLE, (CYCLE 1-5)
     Route: 042
  6. PREDNISOLONE [Suspect]
     Indication: ADULT T-CELL LYMPHOMA/LEUKAEMIA
     Dosage: ON DAYS 1-5 OF 21 DAY CYCLE, (CYCLE 1-5)
     Route: 048
  7. ZENAPAX [Suspect]
     Indication: ADULT T-CELL LYMPHOMA/LEUKAEMIA
     Dosage: ON DAYS 7 AND 14 ON CYCLE 1 OF 21 DAY CYCLE
     Route: 042
  8. ACYCLOVIR [Concomitant]
     Indication: PROPHYLAXIS
     Route: 065
  9. THIABENDAZOLE [Concomitant]
     Indication: STRONGYLOIDIASIS
     Dosage: (MAXIMUM 1.5 G) FOR 3 DAYS
     Route: 065

REACTIONS (1)
  - PARAESTHESIA [None]
